FAERS Safety Report 4533535-1 (Version None)
Quarter: 2004Q4

REPORT INFORMATION
  Report Type: 
  Country: None (occurrence: None)
  Receive Date: 20041221
  Receipt Date: 20041216
  Transmission Date: 20050328
  Serious: Yes (Disabling)
  Sender: FDA-Public Use
  Company Number: US-MERCK-0412USA02104

PATIENT
  Age: 78 Year
  Sex: Male

DRUGS (4)
  1. ZOCOR [Suspect]
     Indication: BLOOD CHOLESTEROL INCREASED
     Route: 048
     Dates: start: 20021201, end: 20040101
  2. IMDUR [Concomitant]
     Route: 065
  3. ASPIRIN [Concomitant]
     Route: 065
  4. FLOMAX [Concomitant]
     Route: 065

REACTIONS (3)
  - BALANCE DISORDER [None]
  - FATIGUE [None]
  - MYALGIA [None]
